FAERS Safety Report 5630857-8 (Version None)
Quarter: 2008Q1

REPORT INFORMATION
  Report Type: 
  Country: None (occurrence: None)
  Receive Date: 20080131
  Receipt Date: 20071220
  Transmission Date: 20080703
  Serious: No
  Sender: FDA-Public Use
  Company Number: 163-21880-07101200

PATIENT
  Age: 83 Year
  Sex: Female

DRUGS (5)
  1. REVLIMID [Suspect]
     Indication: MYELODYSPLASTIC SYNDROME
     Dosage: 5 MG, 1 IN 1 D, ORAL ; 5 MG, 1 IN 1 D, ORAL ; 1 IN 2 D, ORAL
     Route: 048
     Dates: start: 20070917, end: 20071001
  2. REVLIMID [Suspect]
     Indication: MYELODYSPLASTIC SYNDROME
     Dosage: 5 MG, 1 IN 1 D, ORAL ; 5 MG, 1 IN 1 D, ORAL ; 1 IN 2 D, ORAL
     Route: 048
     Dates: start: 20071001
  3. ASPIRIN [Concomitant]
  4. DIGOXIN [Concomitant]
  5. ARANESP [Concomitant]

REACTIONS (1)
  - MUCOSAL INFLAMMATION [None]
